FAERS Safety Report 5904081-5 (Version None)
Quarter: 2008Q3

REPORT INFORMATION
  Report Type: 
  Country: None (occurrence: None)
  Receive Date: 20080919
  Receipt Date: 20080625
  Transmission Date: 20090109
  Serious: No
  Sender: FDA-Public Use
  Company Number: US-WYE-H04749908

PATIENT
  Sex: Female

DRUGS (1)
  1. PRISTIQ [Suspect]
     Dosage: UNSPECIFIED DOSAGE, ORAL
     Route: 048

REACTIONS (3)
  - DIARRHOEA [None]
  - DRY MOUTH [None]
  - INSOMNIA [None]
